FAERS Safety Report 6427619-0 (Version None)
Quarter: 2009Q4

REPORT INFORMATION
  Report Type: 
  Country: None (occurrence: None)
  Receive Date: 20091104
  Receipt Date: 20091023
  Transmission Date: 20100525
  Serious: Yes (Other)
  Sender: FDA-Public Use
  Company Number: SE-JNJCH-2009028395

PATIENT
  Age: 27 Year
  Sex: Female

DRUGS (2)
  1. CETIRIZINE HYDROCHLORIDE [Suspect]
     Indication: URTICARIA
     Dosage: TEXT:10 MG
     Route: 048
     Dates: start: 20060101, end: 20090101
  2. CETIRIZINE HYDROCHLORIDE [Suspect]
     Dosage: TEXT:5 MG
     Route: 048

REACTIONS (3)
  - ANXIETY [None]
  - DEPRESSION [None]
  - FATIGUE [None]
